FAERS Safety Report 21565284 (Version 1)
Quarter: 2022Q4

REPORT INFORMATION
  Report Type: Spontaneous
  Country: US (occurrence: US)
  Receive Date: 20221108
  Receipt Date: 20221108
  Transmission Date: 20230112
  Serious: No
  Sender: FDA-Public Use
  Company Number: US-OYSTER POINT PHARMA, INC.-2022OYS00756

PATIENT
  Sex: Female

DRUGS (1)
  1. TYRVAYA [Suspect]
     Active Substance: VARENICLINE TARTRATE
     Indication: Dry eye
     Dosage: 1 SPRAY EACH NOSTRIL, 2X/DAY
     Route: 045
     Dates: start: 20220615

REACTIONS (2)
  - Sneezing [Recovering/Resolving]
  - Product delivery mechanism issue [Unknown]

NARRATIVE: CASE EVENT DATE: 20220615
